FAERS Safety Report 4696002-0 (Version None)
Quarter: 2005Q2

REPORT INFORMATION
  Report Type: 
  Country: None (occurrence: None)
  Receive Date: 20050621
  Receipt Date: 20050615
  Transmission Date: 20051028
  Serious: Yes (Disabling, Other)
  Sender: FDA-Public Use
  Company Number: US-GLAXOSMITHKLINE-A0563000A

PATIENT
  Sex: Female

DRUGS (2)
  1. WELLBUTRIN [Suspect]
     Indication: ILL-DEFINED DISORDER
     Dosage: 150MG PER DAY
     Route: 048
     Dates: start: 20050101, end: 20050101
  2. NO CONCURRENT MEDICATION [Concomitant]

REACTIONS (3)
  - DYSTONIA [None]
  - FEELING ABNORMAL [None]
  - SPEECH DISORDER [None]
